FAERS Safety Report 14468849 (Version 2)
Quarter: 2018Q2

REPORT INFORMATION
  Report Type: Spontaneous
  Country: US (occurrence: US)
  Receive Date: 20180131
  Receipt Date: 20180521
  Transmission Date: 20180711
  Serious: No
  Sender: FDA-Public Use
  Company Number: US-PFIZER INC-2018038596

PATIENT
  Age: 73 Year
  Sex: Male
  Weight: 93.89 kg

DRUGS (5)
  1. DOXYCYCLINE HYCLATE. [Suspect]
     Active Substance: DOXYCYCLINE HYCLATE
     Indication: BURSA DISORDER
     Dosage: 100 MG, TWICE A DAY
     Route: 048
  2. ZYRTEC [Concomitant]
     Active Substance: CETIRIZINE HYDROCHLORIDE
     Indication: HYPERSENSITIVITY
     Dosage: UNK, ONCE A DAY
     Dates: start: 2015
  3. EUCRISA [Suspect]
     Active Substance: CRISABOROLE
     Indication: ROSACEA
     Dosage: UNK UNK, 2X/DAY, (APPLIED AS OINTMENT)
     Route: 061
     Dates: start: 20180116, end: 20180123
  4. EUCRISA [Suspect]
     Active Substance: CRISABOROLE
     Indication: RASH
  5. LIPITOR [Concomitant]
     Active Substance: ATORVASTATIN CALCIUM
     Indication: BLOOD CHOLESTEROL ABNORMAL
     Dosage: 100 MG, 1X/DAY, (HE HAS BEEN TAKING FOR 5 YEARS PLUS)
     Route: 048

REACTIONS (3)
  - Chapped lips [Recovering/Resolving]
  - Lip haemorrhage [Recovering/Resolving]
  - Skin exfoliation [Recovering/Resolving]

NARRATIVE: CASE EVENT DATE: 201801
